FAERS Safety Report 5808754-4 (Version None)
Quarter: 2008Q3

REPORT INFORMATION
  Report Type: 
  Country: None (occurrence: None)
  Receive Date: 20080702
  Receipt Date: 20080501
  Transmission Date: 20090109
  Serious: Yes (Other)
  Sender: FDA-Public Use
  Company Number: US-WYE-H03907108

PATIENT
  Age: 55 Year
  Sex: Male
  Weight: 77.18 kg

DRUGS (1)
  1. ADVIL LIQUI-GELS [Suspect]
     Indication: ANALGESIA
     Dosage: ORAL
     Route: 048
     Dates: start: 19930101, end: 20080428

REACTIONS (3)
  - CONFUSIONAL STATE [None]
  - MOOD SWINGS [None]
  - SINUSITIS [None]
